FAERS Safety Report 17127669 (Version 2)
Quarter: 2019Q4

REPORT INFORMATION
  Report Type: Report from Study
  Country: GB (occurrence: GB)
  Receive Date: 20191209
  Receipt Date: 20191230
  Transmission Date: 20200122
  Serious: Yes (Death, Hospitalization, Other)
  Sender: FDA-Public Use
  Company Number: GB-BRISTOL-MYERS SQUIBB COMPANY-BMS-2019-096705

PATIENT
  Age: 73 Year
  Sex: Female

DRUGS (2)
  1. IPILIMUMAB [Suspect]
     Active Substance: IPILIMUMAB
     Indication: COLORECTAL CANCER
     Dosage: UNK
     Route: 065
  2. NIVOLUMAB [Suspect]
     Active Substance: NIVOLUMAB
     Indication: COLORECTAL CANCER
     Dosage: 220 MILLIGRAM
     Route: 065

REACTIONS (4)
  - Malignant neoplasm progression [Fatal]
  - Intestinal obstruction [Fatal]
  - Intestinal perforation [Fatal]
  - Sepsis [Unknown]

NARRATIVE: CASE EVENT DATE: 20190905
